FAERS Safety Report 15315869 (Version 1)
Quarter: 2018Q3

REPORT INFORMATION
  Report Type: Report from Study
  Country: None (occurrence: US)
  Receive Date: 20180824
  Receipt Date: 20180824
  Transmission Date: 20181010
  Serious: Yes (Death, Hospitalization, Other)
  Sender: FDA-Public Use
  Company Number: US-ABBVIE-18K-163-2438820-00

PATIENT
  Sex: Female

DRUGS (1)
  1. HUMIRA [Suspect]
     Active Substance: ADALIMUMAB
     Indication: RHEUMATOID ARTHRITIS
     Route: 058
     Dates: start: 201610, end: 20180615

REACTIONS (13)
  - Pulmonary oedema [Recovered/Resolved]
  - Pulmonary oedema [Unknown]
  - Chronic kidney disease [Not Recovered/Not Resolved]
  - Osteoporosis [Not Recovered/Not Resolved]
  - Hypertension [Recovering/Resolving]
  - Oxygen saturation decreased [Recovering/Resolving]
  - Arthritis [Unknown]
  - Oxygen saturation abnormal [Unknown]
  - Rheumatoid vasculitis [Not Recovered/Not Resolved]
  - Rheumatoid arthritis [Unknown]
  - Pneumonia [Fatal]
  - Ulcer [Not Recovered/Not Resolved]
  - Wound [Unknown]

NARRATIVE: CASE EVENT DATE: 2018
